FAERS Safety Report 13416032 (Version 2)
Quarter: 2017Q2

REPORT INFORMATION
  Report Type: Spontaneous
  Country: BG (occurrence: BG)
  Receive Date: 20170407
  Receipt Date: 20170421
  Transmission Date: 20170830
  Serious: Yes (Hospitalization)
  Sender: FDA-Public Use
  Company Number: BG-JNJFOC-20170405449

PATIENT
  Age: 78 Year

DRUGS (4)
  1. TORASEMIDE [Concomitant]
     Active Substance: TORSEMIDE
     Route: 065
  2. LERCANIDIPINE [Concomitant]
     Active Substance: LERCANIDIPINE
     Route: 065
  3. BISOPROLOL [Concomitant]
     Active Substance: BISOPROLOL
     Route: 065
  4. XARELTO [Suspect]
     Active Substance: RIVAROXABAN
     Indication: CEREBROVASCULAR ACCIDENT PROPHYLAXIS
     Route: 048
     Dates: start: 2009

REACTIONS (6)
  - Dyspnoea [Recovering/Resolving]
  - Breath sounds abnormal [Recovering/Resolving]
  - Peripheral swelling [Recovering/Resolving]
  - Wheezing [Recovering/Resolving]
  - General physical health deterioration [Recovering/Resolving]
  - Fatigue [Recovering/Resolving]

NARRATIVE: CASE EVENT DATE: 20170211
